FAERS Safety Report 15262308 (Version 1)
Quarter: 2018Q3

REPORT INFORMATION
  Report Type: Report from Study
  Country: US (occurrence: US)
  Receive Date: 20180809
  Receipt Date: 20180809
  Transmission Date: 20181010
  Serious: No
  Sender: FDA-Public Use
  Company Number: US-ALEXION PHARMACEUTICALS INC.-A201809919

PATIENT
  Sex: Female

DRUGS (1)
  1. SOLIRIS [Suspect]
     Active Substance: ECULIZUMAB
     Indication: PAROXYSMAL NOCTURNAL HAEMOGLOBINURIA
     Dosage: 600 MG,QW
     Route: 042
     Dates: start: 20180705

REACTIONS (3)
  - Peripheral swelling [Unknown]
  - Injection site reaction [Unknown]
  - Drug administration error [Unknown]

NARRATIVE: CASE EVENT DATE: 20180727
